FAERS Safety Report 25919705 (Version 2)
Quarter: 2025Q4

REPORT INFORMATION
  Report Type: Spontaneous
  Country: JP (occurrence: JP)
  Receive Date: 20251014
  Receipt Date: 20251105
  Transmission Date: 20260118
  Serious: Yes (Other)
  Sender: BAYER HEALTHCARE PHARMACEUTICALS INC.
  Company Number: JP-BAYER-2025A135189

PATIENT
  Age: 61 Year
  Sex: Male

DRUGS (2)
  1. STIVARGA [Suspect]
     Active Substance: REGORAFENIB MONOHYDRATE
     Dosage: UNK
     Route: 048
     Dates: start: 20250410
  2. STIVARGA [Suspect]
     Active Substance: REGORAFENIB MONOHYDRATE
     Dosage: UNK
     Dates: start: 20250605

REACTIONS (2)
  - Neuropathy peripheral [None]
  - Toothache [None]

NARRATIVE: CASE EVENT DATE: 20250601
